FAERS Safety Report 10186890 (Version 3)
Quarter: 2014Q2

REPORT INFORMATION
  Report Type: Spontaneous
  Country: JP (occurrence: JP)
  Receive Date: 20140522
  Receipt Date: 20140612
  Transmission Date: 20141212
  Serious: Yes (Other)
  Sender: FDA-Public Use
  Company Number: JP-JNJFOC-20140507004

PATIENT
  Age: 8 Decade
  Sex: Female

DRUGS (1)
  1. ONE DURO [Suspect]
     Indication: PAIN
     Route: 062
     Dates: start: 20140402, end: 2014

REACTIONS (3)
  - Facial bones fracture [Unknown]
  - Fall [Unknown]
  - Dizziness [Unknown]
